FAERS Safety Report 25216566 (Version 1)
Quarter: 2025Q2

REPORT INFORMATION
  Report Type: Spontaneous
  Country: TW (occurrence: TW)
  Receive Date: 20250419
  Receipt Date: 20250419
  Transmission Date: 20250716
  Serious: Yes (Other)
  Sender: ROCHE
  Company Number: TW-ROCHE-10000258027

PATIENT
  Age: 65 Year
  Sex: Male

DRUGS (5)
  1. ATEZOLIZUMAB [Suspect]
     Active Substance: ATEZOLIZUMAB
     Indication: Hepatocellular carcinoma
     Route: 065
  2. BEVACIZUMAB [Suspect]
     Active Substance: BEVACIZUMAB
     Indication: Hepatocellular carcinoma
     Route: 065
  3. CISPLATIN [Concomitant]
     Active Substance: CISPLATIN
  4. LEUCOVORIN CALCIUM [Concomitant]
     Active Substance: LEUCOVORIN CALCIUM
  5. FLUOROURACIL [Concomitant]
     Active Substance: FLUOROURACIL

REACTIONS (1)
  - Neoplasm recurrence [Unknown]
